FAERS Safety Report 23819388 (Version 1)
Quarter: 2024Q2

REPORT INFORMATION
  Report Type: Spontaneous
  Country: CN (occurrence: CN)
  Receive Date: 20240506
  Receipt Date: 20240506
  Transmission Date: 20240715
  Serious: Yes (Life-Threatening, Hospitalization, Other)
  Sender: FDA-Public Use
  Company Number: CN-SANDOZ-SDZ2024CN044446

PATIENT
  Age: 67 Year
  Sex: Female
  Weight: 64 kg

DRUGS (9)
  1. CALCITONIN [Suspect]
     Active Substance: CALCITONIN
     Indication: Product used for unknown indication
     Dosage: 20 UNK, BID
     Route: 030
     Dates: start: 20240420
  2. ZOLEDRONIC ACID [Suspect]
     Active Substance: ZOLEDRONIC ACID
     Indication: Osteoporosis
     Dosage: 100 ML
     Route: 042
     Dates: start: 20240420, end: 20240420
  3. ALFACALCIDOL [Concomitant]
     Active Substance: ALFACALCIDOL
     Indication: Product used for unknown indication
     Dosage: 0.5 UG, QD
     Route: 048
  4. Bupleurum [Concomitant]
     Indication: Product used for unknown indication
     Dosage: 2 ML
     Route: 030
  5. CALCIUM CARBONATE [Concomitant]
     Active Substance: CALCIUM CARBONATE
     Indication: Product used for unknown indication
     Dosage: 0.6 G, QD
     Route: 065
  6. LORNOXICAM [Concomitant]
     Active Substance: LORNOXICAM
     Indication: Product used for unknown indication
     Dosage: 8 MG
     Route: 065
  7. SODIUM CHLORIDE [Concomitant]
     Active Substance: SODIUM CHLORIDE
     Dosage: 200 ML, QD
     Route: 065
  8. SODIUM CHLORIDE [Concomitant]
     Active Substance: SODIUM CHLORIDE
     Indication: Product used for unknown indication
     Dosage: 250 ML, QD
     Route: 065
  9. SODIUM CHLORIDE [Concomitant]
     Active Substance: SODIUM CHLORIDE
     Dosage: 50 ML, QD
     Route: 065

REACTIONS (15)
  - Pyrexia [Unknown]
  - Nausea [Unknown]
  - Vomiting [Unknown]
  - Pain [Unknown]
  - Chills [Unknown]
  - Hypotension [Unknown]
  - Atrial fibrillation [Unknown]
  - Hypokalaemia [Unknown]
  - Hypocalcaemia [Unknown]
  - Chest discomfort [Unknown]
  - Breath sounds abnormal [Unknown]
  - Extrasystoles [Unknown]
  - Cyanosis [Unknown]
  - Hyperhidrosis [Unknown]
  - Dizziness [Unknown]

NARRATIVE: CASE EVENT DATE: 20240420
